FAERS Safety Report 5906176-9 (Version None)
Quarter: 2008Q4

REPORT INFORMATION
  Report Type: 
  Country: None (occurrence: None)
  Receive Date: 20081002
  Receipt Date: 20080922
  Transmission Date: 20090506
  Serious: Yes (Other)
  Sender: FDA-Public Use
  Company Number: FR-AMGEN-UK309176

PATIENT
  Sex: Male
  Weight: 128 kg

DRUGS (1)
  1. ARANESP [Suspect]
     Indication: DIALYSIS
     Route: 058

REACTIONS (1)
  - LIPODYSTROPHY ACQUIRED [None]
